FAERS Safety Report 5365156-5 (Version None)
Quarter: 2007Q2

REPORT INFORMATION
  Report Type: 
  Country: None (occurrence: None)
  Receive Date: 20070621
  Receipt Date: 20070614
  Transmission Date: 20071010
  Serious: Yes (Other)
  Sender: FDA-Public Use
  Company Number: DE-BAYER-200710485BVD

PATIENT
  Age: 76 Year
  Sex: Male
  Weight: 90 kg

DRUGS (1)
  1. AVELOX [Suspect]
     Indication: PNEUMONIA
     Route: 048
     Dates: start: 20070130, end: 20070207

REACTIONS (1)
  - BLOOD CREATINE PHOSPHOKINASE INCREASED [None]
